FAERS Safety Report 5321426-8 (Version None)
Quarter: 2007Q2

REPORT INFORMATION
  Report Type: 
  Country: None (occurrence: None)
  Receive Date: 20070215
  Receipt Date: 20061117
  Transmission Date: 20071010
  Serious: No
  Sender: FDA-Public Use
  Company Number: 200616612BWH

PATIENT
  Age: 59 Year
  Sex: Male

DRUGS (13)
  1. NEXAVAR [Suspect]
     Indication: METASTATIC RENAL CELL CARCINOMA
     Dosage: 400 MG, BID, ORAL
     Route: 048
     Dates: start: 20061113
  2. METFORMIN HCL [Concomitant]
  3. ALLOPURINOL [Concomitant]
  4. LISINOPRIL [Concomitant]
  5. ISOSORB [Concomitant]
  6. CITRUCEL [Concomitant]
  7. ASPIRIN [Concomitant]
  8. LOVASTATIN [Concomitant]
  9. DOXAZOSIN MESYLATE [Concomitant]
  10. COREG [Concomitant]
  11. RISPERDAL [Concomitant]
  12. MULTI-VITAMIN [Concomitant]
  13. ZOLEDRONIC ACID IV [Concomitant]

REACTIONS (2)
  - BURSITIS [None]
  - PAIN [None]
